FAERS Safety Report 7381500-1 (Version None)
Quarter: 2011Q1

REPORT INFORMATION
  Report Type: 
  Country: None (occurrence: None)
  Receive Date: 20110324
  Receipt Date: 20110324
  Transmission Date: 20110831
  Serious: Yes (Hospitalization)
  Sender: FDA-Public Use
  Company Number: None

PATIENT
  Age: 39 Year
  Sex: Female
  Weight: 115.2136 kg

DRUGS (1)
  1. FANAPT [Suspect]
     Indication: SCHIZOAFFECTIVE DISORDER
     Dosage: 6MG 2 X DAY ORAL
     Route: 048
     Dates: start: 20110221, end: 20110301

REACTIONS (14)
  - WEIGHT INCREASED [None]
  - ASTHENIA [None]
  - DIARRHOEA [None]
  - DYSPNOEA [None]
  - DRY MOUTH [None]
  - VOMITING [None]
  - FATIGUE [None]
  - TACHYCARDIA [None]
  - DIZZINESS POSTURAL [None]
  - FEAR [None]
  - DYSPHAGIA [None]
  - OROPHARYNGEAL PAIN [None]
  - HEADACHE [None]
  - PALPITATIONS [None]
